FAERS Safety Report 9161196 (Version 1)
Quarter: 2013Q1

REPORT INFORMATION
  Report Type: Spontaneous
  Country: US (occurrence: US)
  Receive Date: 20130313
  Receipt Date: 20130313
  Transmission Date: 20140127
  Serious: Yes (Hospitalization)
  Sender: FDA-Public Use
  Company Number: US-GLAXOSMITHKLINE-A1014774A

PATIENT
  Age: 78 Year
  Sex: Male

DRUGS (1)
  1. AVANDAMET [Suspect]
     Indication: PRODUCT USED FOR UNKNOWN INDICATION
     Dosage: 1TAB TWICE PER DAY
     Route: 048
     Dates: start: 2011

REACTIONS (4)
  - Emphysema [Not Recovered/Not Resolved]
  - Joint swelling [Recovering/Resolving]
  - Testicular swelling [Recovered/Resolved]
  - Pneumonia [Recovered/Resolved]
